FAERS Safety Report 9637699 (Version 4)
Quarter: 2013Q4

REPORT INFORMATION
  Report Type: Spontaneous
  Country: FR (occurrence: FR)
  Receive Date: 20131022
  Receipt Date: 20131204
  Transmission Date: 20140711
  Serious: Yes (Death, Other)
  Sender: FDA-Public Use
  Company Number: FR-B.I. PHARMACEUTICALS,INC./RIDGEFIELD-2013-FF-02573FF

PATIENT
  Age: 84 Year
  Sex: Female

DRUGS (6)
  1. PRADAXA [Suspect]
     Indication: ATRIAL FIBRILLATION
     Dosage: 220 MG
     Route: 048
     Dates: start: 201201, end: 20120105
  2. CORDARONE [Concomitant]
     Indication: ARRHYTHMIA
  3. LOXEN [Concomitant]
     Indication: HYPERTENSION
  4. PRAVASTATINE [Concomitant]
     Indication: HYPERCHOLESTEROLAEMIA
  5. PERINDOPRIL [Concomitant]
  6. PIASCLEDINE [Concomitant]

REACTIONS (8)
  - Haemorrhage [Fatal]
  - Fall [Fatal]
  - Hypothermia [Fatal]
  - Cardiac arrest [Fatal]
  - Hypotension [Unknown]
  - Bradycardia [Unknown]
  - Femur fracture [Unknown]
  - Altered state of consciousness [Unknown]
